FAERS Safety Report 5743145-6 (Version None)
Quarter: 2008Q2

REPORT INFORMATION
  Report Type: 
  Country: None (occurrence: None)
  Receive Date: 20080519
  Receipt Date: 20080509
  Transmission Date: 20081010
  Serious: Yes (Hospitalization)
  Sender: FDA-Public Use
  Company Number: US-ABBOTT-08P-163-0451342-00

PATIENT
  Sex: Female
  Weight: 54.48 kg

DRUGS (10)
  1. DEPAKOTE [Suspect]
     Indication: AGGRESSION
     Dosage: PEG TUBE
     Dates: start: 20080123, end: 20080221
  2. DEPAKOTE [Suspect]
     Route: 048
     Dates: start: 20080222, end: 20080416
  3. HALOPERIDOL [Suspect]
     Indication: DELIRIUM
  4. RISPERIDONE [Suspect]
     Indication: DRUG USE FOR UNKNOWN INDICATION
  5. RISPERIDONE [Suspect]
     Dosage: EVERY 8 HOURS AT HOME AS REQUIRED
     Route: 048
     Dates: start: 20080222, end: 20080301
  6. ATENOLOL [Concomitant]
     Indication: HYPERTENSION
     Route: 048
  7. AMLODIPINE [Concomitant]
     Indication: HYPERTENSION
     Route: 048
  8. DULOXETINE HYDROCHLORIDE [Concomitant]
     Indication: ANXIETY
     Route: 048
     Dates: start: 20070101
  9. ACETYLSALICYLIC ACID SRT [Concomitant]
     Indication: CEREBROVASCULAR ACCIDENT
     Route: 048
  10. OMEPRAZOLE [Concomitant]
     Indication: PROPHYLAXIS
     Route: 048
     Dates: start: 20070101

REACTIONS (3)
  - DRUG ADMINISTRATION ERROR [None]
  - RESTLESSNESS [None]
  - UNRESPONSIVE TO STIMULI [None]
